FAERS Safety Report 21348062 (Version 1)
Quarter: 2022Q3

REPORT INFORMATION
  Report Type: Report from Study
  Country: US (occurrence: US)
  Receive Date: 20220919
  Receipt Date: 20220919
  Transmission Date: 20221027
  Serious: Yes (Hospitalization)
  Sender: FDA-Public Use
  Company Number: US-ARGENX-2022-ARGX-US001834

PATIENT

DRUGS (1)
  1. VYVGART [Suspect]
     Active Substance: EFGARTIGIMOD ALFA-FCAB
     Indication: Product used for unknown indication

REACTIONS (5)
  - Pain in jaw [Not Recovered/Not Resolved]
  - Cyanosis [Recovering/Resolving]
  - Dyskinesia [Unknown]
  - Dyspnoea [Unknown]
  - Oxygen therapy [Unknown]
